FAERS Safety Report 19326553 (Version 1)
Quarter: 2021Q2

REPORT INFORMATION
  Report Type: Other
  Country: CA (occurrence: CA)
  Receive Date: 20210528
  Receipt Date: 20210528
  Transmission Date: 20210717
  Serious: Yes (Other)
  Sender: FDA-Public Use
  Company Number: CA-ROCHE-2813110

PATIENT
  Age: 74 Year
  Sex: Female

DRUGS (7)
  1. TECENTRIQ [Suspect]
     Active Substance: ATEZOLIZUMAB
     Indication: HEPATOCELLULAR CARCINOMA
     Route: 042
     Dates: start: 20210209
  2. TECENTRIQ [Suspect]
     Active Substance: ATEZOLIZUMAB
     Dosage: DISCONTINUED: 28?FEB?2021
     Route: 042
     Dates: start: 20210201, end: 20210225
  3. TIMOLOL. [Concomitant]
     Active Substance: TIMOLOL
  4. BISOPROLOL [Concomitant]
     Active Substance: BISOPROLOL
  5. AVASTIN [Suspect]
     Active Substance: BEVACIZUMAB
     Indication: HEPATOCELLULAR CARCINOMA
     Route: 042
     Dates: start: 20210209
  6. RAMIPRIL. [Concomitant]
     Active Substance: RAMIPRIL
  7. PREDNISONE. [Concomitant]
     Active Substance: PREDNISONE
     Dates: start: 20210322, end: 20210413

REACTIONS (4)
  - Hepatitis [Unknown]
  - Hepatic function abnormal [Recovered/Resolved]
  - Hepatocellular carcinoma [Unknown]
  - Hypertension [Recovered/Resolved]

NARRATIVE: CASE EVENT DATE: 20210319
